FAERS Safety Report 8329419-3 (Version None)
Quarter: 2012Q2

REPORT INFORMATION
  Report Type: 
  Country: None (occurrence: None)
  Receive Date: 20120502
  Receipt Date: 20120314
  Transmission Date: 20120825
  Serious: Yes (Other)
  Sender: FDA-Public Use
  Company Number: US-ROCHE-1054809

PATIENT
  Sex: Female

DRUGS (3)
  1. WARFARIN SODIUM [Concomitant]
  2. METHOTRATE [Concomitant]
  3. MABTHERA [Suspect]
     Indication: RHEUMATOID ARTHRITIS
     Dates: start: 20111118

REACTIONS (2)
  - SKIN DISCOLOURATION [None]
  - ULCER [None]
